FAERS Safety Report 10140077 (Version 1)
Quarter: 2014Q2

REPORT INFORMATION
  Report Type: Spontaneous
  Country: DK (occurrence: GB)
  Receive Date: 20140429
  Receipt Date: 20140429
  Transmission Date: 20141212
  Serious: Yes (Congenital Anomaly)
  Sender: FDA-Public Use
  Company Number: GB-FRI-1000066889

PATIENT
  Sex: 0
  Weight: 2.86 kg

DRUGS (1)
  1. CITALOPRAM [Suspect]
     Dosage: 20 MG
     Route: 064

REACTIONS (3)
  - Anal atresia [Unknown]
  - Genitalia external ambiguous [Unknown]
  - Foetal exposure during pregnancy [Unknown]
